FAERS Safety Report 7710182-1 (Version None)
Quarter: 2011Q3

REPORT INFORMATION
  Report Type: 
  Country: None (occurrence: None)
  Receive Date: 20110825
  Receipt Date: 20110818
  Transmission Date: 20111222
  Serious: Yes (Other)
  Sender: FDA-Public Use
  Company Number: US-GENENTECH-323185

PATIENT

DRUGS (2)
  1. CHEMOTHERAPY (UNK INGREDIENTS) [Suspect]
     Indication: PRODUCT USED FOR UNKNOWN INDICATION
  2. TNKASE [Suspect]
     Indication: MEDICAL DEVICE COMPLICATION

REACTIONS (1)
  - HYPERSENSITIVITY [None]
